FAERS Safety Report 20054744 (Version 2)
Quarter: 2021Q4

REPORT INFORMATION
  Report Type: Spontaneous
  Country: DE (occurrence: DE)
  Receive Date: 20211110
  Receipt Date: 20211118
  Transmission Date: 20220303
  Serious: No
  Sender: FDA-Public Use
  Company Number: DE-UCBSA-2021052909

PATIENT
  Age: 81 Year
  Sex: Female

DRUGS (1)
  1. LEGANTO [Suspect]
     Active Substance: ROTIGOTINE
     Indication: Restless legs syndrome
     Dosage: 3 MILLIGRAM

REACTIONS (5)
  - Application site reaction [Unknown]
  - Erythema [Unknown]
  - Pruritus [Unknown]
  - Swelling [Unknown]
  - Product adhesion issue [Unknown]
